FAERS Safety Report 6449657-4 (Version None)
Quarter: 2009Q4

REPORT INFORMATION
  Report Type: 
  Country: None (occurrence: None)
  Receive Date: 20091120
  Receipt Date: 20091109
  Transmission Date: 20100525
  Serious: Yes (Other)
  Sender: FDA-Public Use
  Company Number: PHHY2009DE49143

PATIENT
  Age: 67 Year
  Sex: Male

DRUGS (1)
  1. DIOVAN [Suspect]
     Dosage: 80 MG, UNK
     Dates: start: 20090201

REACTIONS (3)
  - APNOEA [None]
  - DYSPNOEA [None]
  - MYALGIA [None]
